FAERS Safety Report 5299477-1 (Version None)
Quarter: 2007Q1

REPORT INFORMATION
  Report Type: 
  Country: None (occurrence: None)
  Receive Date: 20070201
  Receipt Date: 20061106
  Transmission Date: 20070707
  Serious: No
  Sender: FDA-Public Use
  Company Number: 2006PV024670

PATIENT
  Sex: Male

DRUGS (2)
  1. BYETTA [Suspect]
     Indication: DIABETES MELLITUS
     Dosage: BID; SC
     Route: 058
  2. AMBIEN [Concomitant]

REACTIONS (3)
  - ABDOMINAL PAIN UPPER [None]
  - INSOMNIA [None]
  - SOMNOLENCE [None]
